FAERS Safety Report 5813499-0 (Version None)
Quarter: 2008Q3

REPORT INFORMATION
  Report Type: 
  Country: None (occurrence: None)
  Receive Date: 20080717
  Receipt Date: 20080708
  Transmission Date: 20090109
  Serious: Yes (Other)
  Sender: FDA-Public Use
  Company Number: FR-ELI_LILLY_AND_COMPANY-FR200807001306

PATIENT
  Sex: Male

DRUGS (1)
  1. ALIMTA [Suspect]
     Indication: NON-SMALL CELL LUNG CANCER
     Dosage: 925 MG, ON DAY 1 AND 21
     Route: 042
     Dates: start: 20080207, end: 20080228

REACTIONS (4)
  - ANOREXIA [None]
  - CYTOLYTIC HEPATITIS [None]
  - JAUNDICE [None]
  - WEIGHT DECREASED [None]
